FAERS Safety Report 14860229 (Version 2)
Quarter: 2018Q3

REPORT INFORMATION
  Report Type: Spontaneous
  Country: DE (occurrence: DE)
  Receive Date: 20180508
  Receipt Date: 20180806
  Transmission Date: 20181010
  Serious: Yes (Death, Other)
  Sender: FDA-Public Use
  Company Number: DE-SA-2018SA127542

PATIENT
  Age: 60 Year
  Sex: Male

DRUGS (1)
  1. DUPILUMAB [Suspect]
     Active Substance: DUPILUMAB
     Indication: DERMATITIS ATOPIC
     Dosage: UNK UNK,UNK
     Route: 058
     Dates: start: 201802, end: 201803

REACTIONS (6)
  - Septic shock [Fatal]
  - Staphylococcal infection [Unknown]
  - Enteritis [Fatal]
  - Multiple organ dysfunction syndrome [Fatal]
  - Cholecystitis [Fatal]
  - Sepsis [Fatal]

NARRATIVE: CASE EVENT DATE: 201802
